FAERS Safety Report 5721316-2 (Version None)
Quarter: 2008Q2

REPORT INFORMATION
  Report Type: 
  Country: None (occurrence: None)
  Receive Date: 20080424
  Receipt Date: 20080415
  Transmission Date: 20081010
  Serious: Yes (Other)
  Sender: FDA-Public Use
  Company Number: GXKR2008PT03655

PATIENT
  Age: 54 Year
  Sex: Female
  Weight: 63 kg

DRUGS (5)
  1. OMEPRAZOLE [Suspect]
  2. IBUPROFEN [Concomitant]
  3. AMOXICILLIN TRIHYDRATE [Concomitant]
  4. CLAVULANATE POTASSIUM (CLAVULANATE POTASSIUM) [Concomitant]
  5. BROMHEXINE HYDROCHLORIDE (BROMHEXINE HYDROCHLORIDE) [Concomitant]

REACTIONS (2)
  - HYPOGEUSIA [None]
  - HYPOSMIA [None]
